FAERS Safety Report 25223724 (Version 2)
Quarter: 2025Q2

REPORT INFORMATION
  Report Type: Report from Study
  Country: IN (occurrence: IN)
  Receive Date: 20250422
  Receipt Date: 20250623
  Transmission Date: 20250717
  Serious: Yes (Other)
  Sender: ROCHE
  Company Number: IN-ROCHE-10000256989

PATIENT
  Age: 68 Year
  Sex: Male

DRUGS (1)
  1. TECENTRIQ [Suspect]
     Active Substance: ATEZOLIZUMAB
     Indication: Hepatocellular carcinoma
     Route: 042
     Dates: start: 20240906

REACTIONS (4)
  - Radioembolisation [Unknown]
  - Transcatheter arterial chemoembolisation [Unknown]
  - Off label use [Unknown]
  - Jaundice [Unknown]

NARRATIVE: CASE EVENT DATE: 20250411
